FAERS Safety Report 20296840 (Version 2)
Quarter: 2023Q1

REPORT INFORMATION
  Report Type: Spontaneous
  Country: US (occurrence: None)
  Receive Date: 20220105
  Receipt Date: 20230108
  Transmission Date: 20230418
  Serious: No
  Sender: FDA-Public Use
  Company Number: US-ROCHE-2910760

PATIENT
  Sex: Male

DRUGS (7)
  1. HEMLIBRA [Suspect]
     Active Substance: EMICIZUMAB-KXWH
     Indication: Factor VIII deficiency
     Dosage: 60MG/0.4 ML
     Route: 058
     Dates: start: 20210818
  2. HEMLIBRA [Suspect]
     Active Substance: EMICIZUMAB-KXWH
     Dosage: 259.5MG/1.73ML,?105 MG/0.7 ML
     Route: 058
     Dates: start: 20210818
  3. HEMLIBRA [Suspect]
     Active Substance: EMICIZUMAB-KXWH
     Dosage: 60MG/0.4 ML
     Route: 058
     Dates: start: 202201
  4. HEMLIBRA [Suspect]
     Active Substance: EMICIZUMAB-KXWH
     Dosage: 105MG/0.7ML
     Route: 058
     Dates: start: 202201
  5. HEMLIBRA [Suspect]
     Active Substance: EMICIZUMAB-KXWH
     Dosage: 270MG/1.8ML, ?60MG/0.4 ML
     Route: 058
     Dates: start: 202201
  6. HEMLIBRA [Suspect]
     Active Substance: EMICIZUMAB-KXWH
     Dosage: 270MG/1.8ML,?105MG/0.7ML
     Route: 058
     Dates: start: 202201
  7. ADYNOVATE [Concomitant]
     Active Substance: ANTIHEMOPHILIC FACTOR, HUMAN RECOMBINANT

REACTIONS (3)
  - Skin laceration [Not Recovered/Not Resolved]
  - Contusion [Unknown]
  - Coagulopathy [Unknown]
